FAERS Safety Report 7136168-6 (Version None)
Quarter: 2010Q4

REPORT INFORMATION
  Report Type: 
  Country: None (occurrence: None)
  Receive Date: 20101206
  Receipt Date: 20070824
  Transmission Date: 20110411
  Serious: Yes (Death)
  Sender: FDA-Public Use
  Company Number: US-ACTELION-A-US2007-15709

PATIENT

DRUGS (11)
  1. ILOPROST INHALATION SOLUTION UNKNOWN US [Suspect]
     Indication: PULMONARY HYPERTENSION
     Route: 055
     Dates: start: 20060710
  2. TRACLEER [Concomitant]
     Indication: PULMONARY HYPERTENSION
     Route: 048
  3. LASIX [Concomitant]
  4. PREDNISONE [Concomitant]
  5. COUMADIN [Concomitant]
  6. CARDIZEM CD [Concomitant]
  7. METOLAZONE [Concomitant]
  8. DEMEROL [Concomitant]
  9. PHENERGAN [Concomitant]
  10. FOLIC ACID [Concomitant]
  11. ALBUTEROL [Concomitant]

REACTIONS (1)
  - DEATH [None]
